FAERS Safety Report 4607390-5 (Version None)
Quarter: 2005Q1

REPORT INFORMATION
  Report Type: 
  Country: None (occurrence: None)
  Receive Date: 20050311
  Receipt Date: 20050311
  Transmission Date: 20050727
  Serious: No
  Sender: FDA-Public Use
  Company Number: None

PATIENT
  Age: 58 Year
  Sex: Male

DRUGS (2)
  1. FOSINOPRIL [Suspect]
     Dosage: 10 MG DAILY
     Dates: start: 20041209
  2. TRAMADOL HCL [Suspect]
     Dosage: 50MG Q 8 HOURS
     Dates: start: 20041209

REACTIONS (2)
  - DRUG HYPERSENSITIVITY [None]
  - SWELLING FACE [None]
